FAERS Safety Report 22136731 (Version 1)
Quarter: 2023Q1

REPORT INFORMATION
  Report Type: Spontaneous
  Country: GB (occurrence: None)
  Receive Date: 20230324
  Receipt Date: 20230324
  Transmission Date: 20230418
  Serious: Yes (Death, Hospitalization, Other)
  Sender: FDA-Public Use
  Company Number: 2023A069045

PATIENT
  Age: 72 Year
  Sex: Male

DRUGS (3)
  1. OSIMERTINIB [Suspect]
     Active Substance: OSIMERTINIB
     Indication: Non-small cell lung cancer
     Dosage: 20 MONTHS
     Route: 048
  2. GEFITINIB [Suspect]
     Active Substance: GEFITINIB
     Indication: Non-small cell lung cancer
     Dosage: 15 MONTHS
     Route: 048
  3. CISPLATIN\PEMETREXED [Concomitant]
     Active Substance: CISPLATIN\PEMETREXED
     Indication: Non-small cell lung cancer

REACTIONS (4)
  - Atrial fibrillation [Fatal]
  - Cardiac failure [Fatal]
  - Electrocardiogram QT prolonged [Fatal]
  - Malignant neoplasm progression [Fatal]
